FAERS Safety Report 7820633-X (Version None)
Quarter: 2011Q4

REPORT INFORMATION
  Report Type: 
  Country: None (occurrence: None)
  Receive Date: 20111018
  Receipt Date: 20111011
  Transmission Date: 20120403
  Serious: No
  Sender: FDA-Public Use
  Company Number: US-JNJFOC-20110812936

PATIENT
  Sex: Male

DRUGS (8)
  1. MORPHINE [Suspect]
     Indication: PRODUCT USED FOR UNKNOWN INDICATION
     Route: 065
  2. AMBIEN [Suspect]
     Indication: SLEEP DISORDER
     Route: 065
  3. CLONAZEPAM [Concomitant]
     Indication: SLEEP DISORDER
     Route: 048
     Dates: start: 20040101
  4. ALPRAZOLAM [Suspect]
     Indication: ANXIETY
     Route: 065
  5. DURAGESIC-100 [Suspect]
     Indication: BACK PAIN
     Route: 062
     Dates: start: 20050101
  6. TRAZODONE HYDROCHLORIDE [Concomitant]
     Indication: SLEEP DISORDER THERAPY
     Route: 048
     Dates: start: 20030101
  7. DURAGESIC-100 [Suspect]
     Route: 062
     Dates: end: 20110811
  8. FENTANYL-100 [Suspect]
     Indication: BACK PAIN
     Route: 062
     Dates: start: 20110811

REACTIONS (5)
  - PRODUCT ADHESION ISSUE [None]
  - DRUG ADMINISTERED AT INAPPROPRIATE SITE [None]
  - SLEEP DISORDER [None]
  - ANXIETY [None]
  - ADVERSE EVENT [None]
